FAERS Safety Report 6906880 (Version 6)
Quarter: 2013Q2

REPORT INFORMATION
  Report Type: Report from Study
  Country: JP (occurrence: JP)
  Receive Date: 20090211
  Receipt Date: 20130628
  Transmission Date: 20140414
  Serious: Yes (Hospitalization, Other)
  Sender: FDA-Public Use
  Company Number: JP-ABBOTT-09P-087-0499783-00

PATIENT
  Age: 73 Year
  Sex: Female

DRUGS (13)
  1. HUMIRA 40 MG/ 0.8 ML PRE-FILLED SYRINGE [Suspect]
     Indication: RHEUMATOID ARTHRITIS
     Route: 058
     Dates: start: 20081008, end: 20081217
  2. METHOTREXATE [Suspect]
     Indication: RHEUMATOID ARTHRITIS
     Dosage: 8 MG PER WEEK
     Route: 048
     Dates: start: 200204, end: 20090115
  3. FOLIC ACID [Concomitant]
     Indication: RHEUMATOID ARTHRITIS
     Route: 048
  4. FOLIC ACID [Concomitant]
     Indication: PROPHYLAXIS
     Route: 048
     Dates: end: 20090121
  5. FOLIC ACID [Concomitant]
     Indication: ADVERSE DRUG REACTION
  6. PREDNISOLONE [Concomitant]
     Indication: RHEUMATOID ARTHRITIS
     Route: 048
     Dates: end: 20090121
  7. ETODOLAC [Concomitant]
     Indication: RHEUMATOID ARTHRITIS
     Route: 048
     Dates: end: 20090121
  8. ATORVASTATIN CALCIUM [Concomitant]
     Indication: HYPERLIPIDAEMIA
     Route: 048
     Dates: end: 20090121
  9. PRANLUKAST [Concomitant]
     Indication: ASTHMA
     Route: 048
  10. THEOPHYLLINE [Concomitant]
     Indication: ASTHMA
     Route: 048
  11. TROXIPIDE [Concomitant]
     Indication: PROPHYLAXIS
     Route: 048
  12. TROXIPIDE [Concomitant]
     Indication: ADVERSE DRUG REACTION
  13. TROXIPIDE [Concomitant]
     Indication: GASTRITIS PROPHYLAXIS

REACTIONS (6)
  - Hip arthroplasty [Unknown]
  - Periprosthetic fracture [Recovered/Resolved]
  - Rheumatoid arthritis [Not Recovered/Not Resolved]
  - Interstitial lung disease [Not Recovered/Not Resolved]
  - Computerised tomogram thorax abnormal [Unknown]
  - Computerised tomogram thorax abnormal [Unknown]
